FAERS Safety Report 6353240-9 (Version None)
Quarter: 2009Q3

REPORT INFORMATION
  Report Type: 
  Country: None (occurrence: None)
  Receive Date: 20090912
  Receipt Date: 20090622
  Transmission Date: 20100115
  Serious: No
  Sender: FDA-Public Use
  Company Number: US-ABBOTT-08P-163-0456052-00

PATIENT
  Sex: Female
  Weight: 77.18 kg

DRUGS (2)
  1. HUMIRA [Suspect]
     Indication: CROHN'S DISEASE
     Dosage: ONE PEN EVERY OTHER WEEK
     Route: 058
  2. HYPERTENSION PILL [Concomitant]
     Indication: HYPERTENSION
     Route: 048

REACTIONS (4)
  - ABDOMINAL PAIN UPPER [None]
  - CROHN'S DISEASE [None]
  - INCORRECT DOSE ADMINISTERED [None]
  - INSOMNIA [None]
